FAERS Safety Report 8301765-9 (Version None)
Quarter: 2012Q2

REPORT INFORMATION
  Report Type: 
  Country: None (occurrence: None)
  Receive Date: 20120420
  Receipt Date: 20120411
  Transmission Date: 20120825
  Serious: Yes (Hospitalization, Other)
  Sender: FDA-Public Use
  Company Number: US-ASTRAZENECA-2012SE05793

PATIENT
  Age: 59 Year
  Sex: Female

DRUGS (4)
  1. SYMBICORT [Suspect]
     Indication: ASTHMA
     Route: 055
     Dates: start: 20070101, end: 20110502
  2. SINGULAIR [Concomitant]
  3. DIGOXIN [Suspect]
     Route: 065
  4. TOPROL-XL [Suspect]
     Route: 048

REACTIONS (7)
  - FALL [None]
  - CARDIAC FAILURE [None]
  - MALAISE [None]
  - FOOT FRACTURE [None]
  - CARDIAC INFECTION [None]
  - COUGH [None]
  - ASTHMA [None]
